FAERS Safety Report 9569745 (Version 1)
Quarter: 2013Q3

REPORT INFORMATION
  Report Type: Spontaneous
  Country: US (occurrence: US)
  Receive Date: 20130930
  Receipt Date: 20130930
  Transmission Date: 20140515
  Serious: No
  Sender: FDA-Public Use
  Company Number: US-AMGEN-USASP2013066239

PATIENT
  Age: 89 Year
  Sex: Female

DRUGS (15)
  1. ENBREL [Suspect]
     Indication: RHEUMATOID ARTHRITIS
     Dosage: 25 MG, UNK
     Route: 065
     Dates: start: 20120417
  2. OXYBUTYNIN CHLORIDE [Concomitant]
     Dosage: UNK
  3. METOPROLOL                         /00376903/ [Concomitant]
     Dosage: UNK (ER)
  4. NAPROXEN [Concomitant]
     Dosage: UNK
  5. BIOTIN [Concomitant]
     Dosage: UNK (5000)
  6. FISH OIL [Concomitant]
     Dosage: UNK
  7. AGGRENOX [Concomitant]
     Dosage: UNK
  8. PRILOSEC                           /00661201/ [Concomitant]
     Dosage: UNK
  9. VITAMIN C                          /00008001/ [Concomitant]
     Dosage: UNK
  10. VITAMIN E                          /00110502/ [Concomitant]
     Dosage: UNK
  11. VITAMIN D3 [Concomitant]
     Dosage: UNK
  12. DYAZIDE [Concomitant]
     Dosage: UNK
  13. PENICILLIN V POTASSIUM [Concomitant]
     Dosage: UNK
  14. ALEVE [Concomitant]
     Dosage: UNK
  15. VESICARE [Concomitant]
     Dosage: UNK

REACTIONS (3)
  - Injection site bruising [Unknown]
  - Injection site reaction [Unknown]
  - Gastrointestinal infection [Recovered/Resolved]
